FAERS Safety Report 16754960 (Version 1)
Quarter: 2019Q3

REPORT INFORMATION
  Report Type: Spontaneous
  Country: US (occurrence: US)
  Receive Date: 20190711
  Receipt Date: 20190711
  Transmission Date: 20191005
  Serious: No
  Sender: FDA-Public Use
  Company Number: None

PATIENT
  Age: 32 Year
  Sex: Female

DRUGS (1)
  1. NEUPOGEN [Suspect]
     Active Substance: FILGRASTIM
     Indication: AGRANULOCYTOSIS
     Dosage: ?          OTHER FREQUENCY:EVERY 3 DAYS;?
     Route: 058
     Dates: start: 20181217

REACTIONS (2)
  - Vaginal discharge [None]
  - Vaginal haemorrhage [None]

NARRATIVE: CASE EVENT DATE: 20190502
